FAERS Safety Report 8494158 (Version 3)
Quarter: 2013Q2

REPORT INFORMATION
  Report Type: Spontaneous
  Country: CA (occurrence: CA)
  Receive Date: 20120404
  Receipt Date: 20130620
  Transmission Date: 20140414
  Serious: Yes (Hospitalization)
  Sender: FDA-Public Use
  Company Number: CA-GLAXOSMITHKLINE-A0933604A

PATIENT
  Age: 68 Year
  Sex: Female
  Weight: 61.4 kg

DRUGS (1)
  1. ADVAIR [Suspect]
     Indication: ASTHMA
     Dosage: 1PUFF PER DAY
     Route: 055
     Dates: start: 2006

REACTIONS (16)
  - Dysphonia [Not Recovered/Not Resolved]
  - Oropharyngeal discomfort [Unknown]
  - Speech disorder [Unknown]
  - Diaphragmatic rupture [Unknown]
  - Cough [Recovering/Resolving]
  - Increased upper airway secretion [Recovered/Resolved]
  - Chest discomfort [Recovering/Resolving]
  - Throat tightness [Recovering/Resolving]
  - Incorrect dose administered [Unknown]
  - Fall [Recovered/Resolved]
  - Spinal column injury [Recovered/Resolved]
  - Spinal compression fracture [Recovered/Resolved]
  - Pain [Recovered/Resolved]
  - Pneumonia [Recovered/Resolved]
  - Malaise [Recovered/Resolved]
  - Nasopharyngitis [Recovered/Resolved]
